FAERS Safety Report 7115293-X (Version None)
Quarter: 2010Q4

REPORT INFORMATION
  Report Type: 
  Country: None (occurrence: None)
  Receive Date: 20101117
  Receipt Date: 20101117
  Transmission Date: 20110411
  Serious: Yes (Life-Threatening)
  Sender: FDA-Public Use
  Company Number: None

PATIENT
  Age: 68 Year
  Sex: Male
  Weight: 80 kg

DRUGS (10)
  1. DOFETILIDE 500 MCG [Suspect]
     Indication: ATRIAL FIBRILLATION
     Dosage: 500MCG Q 12 H PO
     Route: 048
     Dates: start: 20091119, end: 20091121
  2. DUONEB [Concomitant]
  3. ASPIRIN [Concomitant]
  4. CARVEDILOL [Concomitant]
  5. ENOXAPARIN SODIUM [Concomitant]
  6. FOLIC ACID [Concomitant]
  7. THIAMINE [Concomitant]
  8. MULTI-VITAMIN [Concomitant]
  9. NYSTATIN [Concomitant]
  10. VANCOMYCIN [Concomitant]

REACTIONS (2)
  - BUNDLE BRANCH BLOCK [None]
  - TORSADE DE POINTES [None]
